FAERS Safety Report 15321598 (Version 2)
Quarter: 2018Q4

REPORT INFORMATION
  Report Type: Spontaneous
  Country: US (occurrence: US)
  Receive Date: 20180827
  Receipt Date: 20181211
  Transmission Date: 20190204
  Serious: No
  Sender: FDA-Public Use
  Company Number: US-BAYER-2018-155451

PATIENT
  Age: 42 Year
  Sex: Female

DRUGS (5)
  1. ESCITALOPRAM [Concomitant]
     Active Substance: ESCITALOPRAM OXALATE
     Dosage: 1 DF, QD
  2. HYDROXYCHLOROQUINE [Concomitant]
     Active Substance: HYDROXYCHLOROQUINE
     Dosage: 1.25 DF, BID
  3. ALPRAZOLAM. [Concomitant]
     Active Substance: ALPRAZOLAM
     Dosage: 1 MG, PRN
  4. GADAVIST [Suspect]
     Active Substance: GADOBUTROL
     Dosage: UNK
     Route: 042
     Dates: start: 20180815, end: 20180815
  5. OXYCODONE [Concomitant]
     Active Substance: OXYCODONE
     Dosage: 1 DF, PRN

REACTIONS (8)
  - Swollen tongue [Recovered/Resolved]
  - Swelling [Recovered/Resolved]
  - Feeling hot [None]
  - Urticaria [Recovered/Resolved]
  - Throat tightness [Recovered/Resolved]
  - Chest discomfort [Recovered/Resolved]
  - Contrast media allergy [Recovered/Resolved]
  - Paraesthesia oral [Recovered/Resolved]

NARRATIVE: CASE EVENT DATE: 20180815
